FAERS Safety Report 24820342 (Version 1)
Quarter: 2025Q1

REPORT INFORMATION
  Report Type: Report from Study
  Country: DE (occurrence: DE)
  Receive Date: 20250108
  Receipt Date: 20250108
  Transmission Date: 20250409
  Serious: Yes (Other)
  Sender: MYLAN
  Company Number: DE-BASILEA PHARMACEUTICA DEUTSCHLAND GMBH-DE-BAS-24-01285

PATIENT
  Age: 59 Year

DRUGS (6)
  1. ONDANSETRON [Interacting]
     Active Substance: ONDANSETRON
     Indication: Nausea
     Dosage: 8 MILLIGRAM, BID
     Route: 065
  2. VORICONAZOLE [Concomitant]
     Active Substance: VORICONAZOLE
     Indication: Sinusitis fungal
     Dosage: 200 MILLIGRAM, BID
     Route: 065
     Dates: start: 20240802, end: 20240815
  3. VORICONAZOLE [Concomitant]
     Active Substance: VORICONAZOLE
     Route: 065
     Dates: start: 20240815, end: 20240820
  4. VORICONAZOLE [Concomitant]
     Active Substance: VORICONAZOLE
     Route: 065
     Dates: start: 20240821, end: 20240828
  5. TERBINAFINE [Concomitant]
     Active Substance: TERBINAFINE
     Indication: Sinusitis fungal
     Dosage: 250 MILLIGRAM, BID
     Route: 065
     Dates: start: 20240802, end: 20240828
  6. Metoclopramid biofarm [Concomitant]
     Indication: Nausea
     Route: 065

REACTIONS (2)
  - Hepatic enzyme increased [Recovered/Resolved]
  - Drug interaction [Recovered/Resolved]

NARRATIVE: CASE EVENT DATE: 20240925
